FAERS Safety Report 7724162-3 (Version None)
Quarter: 2011Q3

REPORT INFORMATION
  Report Type: 
  Country: None (occurrence: None)
  Receive Date: 20110901
  Receipt Date: 20110822
  Transmission Date: 20111222
  Serious: Yes (Hospitalization, Other)
  Sender: FDA-Public Use
  Company Number: US-BAYER-201041651NA

PATIENT
  Age: 54 Year
  Sex: Female

DRUGS (15)
  1. TRASYLOL [Suspect]
     Indication: TRICUSPID VALVE REPAIR
  2. SODIUM BICARBONATE [Concomitant]
     Dosage: 30 MEQ, PRIME ADDITIVE
     Dates: start: 20030119, end: 20030119
  3. INSULIN [Concomitant]
  4. CALCIUM GLUCONATE [Concomitant]
  5. HEPARIN [Concomitant]
     Dosage: 18000 U, UNK
     Route: 042
     Dates: start: 20030119, end: 20030119
  6. LASIX [Concomitant]
  7. SODIUM BICARBONATE [Concomitant]
     Dosage: 235 MEQ, UNK
     Route: 042
     Dates: start: 20030119, end: 20030119
  8. EPINEPHRINE [Concomitant]
     Dosage: UNK
     Route: 042
     Dates: start: 20030119
  9. HEPARIN [Concomitant]
     Dosage: 1000 U, PRIME ADDITIVE
     Dates: start: 20030119, end: 20030119
  10. TRASYLOL [Suspect]
     Indication: AORTIC VALVE REPLACEMENT
  11. TRASYLOL [Suspect]
     Indication: AORTIC SURGERY
     Dosage: UNK
     Route: 042
     Dates: start: 20030119
  12. KAYEXALATE [Concomitant]
  13. DOPAMINE HCL [Concomitant]
     Dosage: UNK
     Route: 042
     Dates: start: 20030119
  14. NEO SYNEPHRIN [Concomitant]
     Dosage: UNK
     Route: 042
     Dates: start: 20030119
  15. CEFAZOLIN [Concomitant]
     Dosage: 1000 MG, PRIME ADDITIVE
     Dates: start: 20030119, end: 20030119

REACTIONS (10)
  - RENAL IMPAIRMENT [None]
  - ANXIETY [None]
  - RENAL FAILURE [None]
  - INJURY [None]
  - STRESS [None]
  - FEAR [None]
  - RENAL INJURY [None]
  - UNEVALUABLE EVENT [None]
  - EMOTIONAL DISTRESS [None]
  - PAIN [None]
